FAERS Safety Report 21056463 (Version 1)
Quarter: 2022Q3

REPORT INFORMATION
  Report Type: Spontaneous
  Country: US (occurrence: None)
  Receive Date: 20220708
  Receipt Date: 20220708
  Transmission Date: 20221027
  Serious: No
  Sender: FDA-Public Use
  Company Number: 2022A215223

PATIENT
  Age: 22814 Day
  Sex: Male
  Weight: 80.3 kg

DRUGS (1)
  1. LYNPARZA [Suspect]
     Active Substance: OLAPARIB
     Indication: Lung adenocarcinoma
     Route: 048
     Dates: start: 20220605

REACTIONS (4)
  - Feeling abnormal [Unknown]
  - Lethargy [Unknown]
  - Asthenia [Unknown]
  - Product use issue [Unknown]

NARRATIVE: CASE EVENT DATE: 20220605
